FAERS Safety Report 7105153-2 (Version None)
Quarter: 2010Q4

REPORT INFORMATION
  Report Type: 
  Country: None (occurrence: None)
  Receive Date: 20101116
  Receipt Date: 20101115
  Transmission Date: 20110411
  Serious: Yes (Hospitalization)
  Sender: FDA-Public Use
  Company Number: HK-ABBOTT-10P-075-0684750-00

PATIENT
  Age: 37 Year
  Sex: Female

DRUGS (5)
  1. SIBUTRAMINE HYDROCHLORIDE MONOHYDRATE [Suspect]
     Indication: PRODUCT USED FOR UNKNOWN INDICATION
  2. EMODIN [Suspect]
     Indication: PRODUCT USED FOR UNKNOWN INDICATION
  3. ALOE-EMODIN [Suspect]
     Indication: PRODUCT USED FOR UNKNOWN INDICATION
  4. CAFFEINE [Suspect]
     Indication: PRODUCT USED FOR UNKNOWN INDICATION
  5. PHYSCION [Suspect]
     Indication: PRODUCT USED FOR UNKNOWN INDICATION

REACTIONS (2)
  - FLIGHT OF IDEAS [None]
  - PARANOIA [None]
